FAERS Safety Report 4981307-6 (Version None)
Quarter: 2006Q2

REPORT INFORMATION
  Report Type: 
  Country: None (occurrence: None)
  Receive Date: 20060424
  Receipt Date: 20060413
  Transmission Date: 20061013
  Serious: Yes (Disabling)
  Sender: FDA-Public Use
  Company Number: US-MERCK-0604USA02738

PATIENT
  Sex: Male

DRUGS (2)
  1. VIOXX [Suspect]
     Indication: ARTHRITIS
     Route: 047
     Dates: start: 20000101, end: 20040501
  2. VIOXX [Suspect]
     Indication: PAIN
     Route: 047
     Dates: start: 20000101, end: 20040501

REACTIONS (1)
  - MYOCARDIAL INFARCTION [None]
